FAERS Safety Report 6390117-7 (Version None)
Quarter: 2009Q4

REPORT INFORMATION
  Report Type: 
  Country: None (occurrence: None)
  Receive Date: 20091003
  Receipt Date: 20090917
  Transmission Date: 20100525
  Serious: Yes (Hospitalization)
  Sender: FDA-Public Use
  Company Number: AUR-APL-2009-00760

PATIENT
  Age: 76 Year
  Sex: Female
  Weight: 64.4 kg

DRUGS (7)
  1. HYDROCHLOROTHIAZIDE [Suspect]
     Indication: HYPERTENSION
     Dosage: UNK, UNK, ORAL
     Route: 048
     Dates: end: 20060501
  2. EXEMESTANE [Suspect]
     Indication: BREAST CANCER
     Dosage: 25MG, DAILY, ORAL
     Route: 048
     Dates: start: 20040526
  3. AVAPRO [Concomitant]
  4. LEVOTHYROXINE SODIUM [Concomitant]
  5. PHENOBARBITAL [Concomitant]
  6. FOSAMAX [Concomitant]
  7. ASPIRIN [Concomitant]

REACTIONS (5)
  - DEHYDRATION [None]
  - DEPRESSED LEVEL OF CONSCIOUSNESS [None]
  - FATIGUE [None]
  - LOSS OF CONSCIOUSNESS [None]
  - SYNCOPE [None]
